FAERS Safety Report 7590773-1 (Version None)
Quarter: 2011Q3

REPORT INFORMATION
  Report Type: 
  Country: None (occurrence: None)
  Receive Date: 20110705
  Receipt Date: 20110622
  Transmission Date: 20111222
  Serious: Yes (Other)
  Sender: FDA-Public Use
  Company Number: PHHY2011DE33641

PATIENT
  Sex: Female

DRUGS (4)
  1. VITAMIN D [Concomitant]
  2. RASILEZ [Suspect]
     Indication: HYPERTENSION
  3. ACE INHIBITOR NOS [Concomitant]
  4. DIURETICS [Concomitant]

REACTIONS (4)
  - OEDEMA [None]
  - BLOOD CREATININE INCREASED [None]
  - RENAL IMPAIRMENT [None]
  - URINE OUTPUT DECREASED [None]
